FAERS Safety Report 4919916-2 (Version None)
Quarter: 2006Q1

REPORT INFORMATION
  Report Type: 
  Country: None (occurrence: None)
  Receive Date: 20060216
  Receipt Date: 20060208
  Transmission Date: 20060701
  Serious: Yes (Life-Threatening, Hospitalization)
  Sender: FDA-Public Use
  Company Number: DE-2006-002626

PATIENT
  Sex: Female

DRUGS (2)
  1. YASMIN [Suspect]
     Dosage: ORAL
     Route: 048
     Dates: start: 20060101
  2. ACE INHIBITOR [Concomitant]

REACTIONS (3)
  - ANGIONEUROTIC OEDEMA [None]
  - EPIGLOTTITIS [None]
  - FOOD ALLERGY [None]
